FAERS Safety Report 8953850 (Version 2)
Quarter: 2012Q4

REPORT INFORMATION
  Report Type: 
  Country: US (occurrence: US)
  Receive Date: 20121206
  Receipt Date: 20121214
  Transmission Date: 20130627
  Serious: Yes (Other)
  Sender: FDA-Public Use
  Company Number: US-JNJFOC-20121200704

PATIENT
  Age: 53 Year
  Sex: Female

DRUGS (9)
  1. XARELTO [Suspect]
     Indication: SURGERY
     Route: 048
     Dates: start: 2012, end: 2012
  2. XARELTO [Suspect]
     Indication: THROMBOSIS PROPHYLAXIS
     Route: 048
     Dates: start: 2012, end: 2012
  3. MELOXICAM [Concomitant]
     Indication: PRODUCT USED FOR UNKNOWN INDICATION
  4. LISINOPRIL [Concomitant]
     Indication: PRODUCT USED FOR UNKNOWN INDICATION
  5. OMEPRAZOLE [Concomitant]
     Indication: PRODUCT USED FOR UNKNOWN INDICATION
  6. CYMBALTA [Concomitant]
     Indication: PRODUCT USED FOR UNKNOWN INDICATION
  7. METFORMIN [Concomitant]
     Indication: PRODUCT USED FOR UNKNOWN INDICATION
  8. LIBRAX [Concomitant]
     Indication: PRODUCT USED FOR UNKNOWN INDICATION
  9. BUPROPION [Concomitant]
     Indication: PRODUCT USED FOR UNKNOWN INDICATION

REACTIONS (1)
  - Pulmonary embolism [Recovered/Resolved]
